FAERS Safety Report 7732896-X (Version None)
Quarter: 2011Q3

REPORT INFORMATION
  Report Type: 
  Country: None (occurrence: None)
  Receive Date: 20110901
  Receipt Date: 20110817
  Transmission Date: 20111222
  Serious: Yes (Other)
  Sender: FDA-Public Use
  Company Number: GB-1187309

PATIENT
  Sex: Female

DRUGS (3)
  1. XALATAN [Concomitant]
  2. TOBRADEX [Suspect]
     Indication: POSTOPERATIVE CARE
     Dosage: OPHTHALMIC
     Route: 047
     Dates: start: 20110419, end: 20110517
  3. MAXIDEX [Suspect]
     Indication: POSTOPERATIVE CARE
     Dosage: OPHTHALMIC
     Route: 047

REACTIONS (1)
  - UVEITIS [None]
